FAERS Safety Report 9187433 (Version 9)
Quarter: 2013Q2

REPORT INFORMATION
  Report Type: Spontaneous
  Country: US (occurrence: US)
  Receive Date: 20130325
  Receipt Date: 20130613
  Transmission Date: 20140414
  Serious: Yes (Life-Threatening, Hospitalization)
  Sender: FDA-Public Use
  Company Number: US-JNJFOC-20130309748

PATIENT
  Age: 74 Year
  Sex: Female
  Weight: 72.58 kg

DRUGS (7)
  1. XARELTO [Suspect]
     Indication: CARDIAC DISORDER
     Route: 048
     Dates: start: 20120507, end: 20130215
  2. DIGOXIN [Concomitant]
     Indication: ATRIAL FIBRILLATION
     Route: 065
     Dates: start: 20051103
  3. ZYRTEC [Concomitant]
     Indication: SEASONAL ALLERGY
     Route: 065
     Dates: start: 1981
  4. TRAMADOL ACETAMNIOPHEN [Concomitant]
     Indication: ARTHRALGIA
     Route: 065
  5. VITAMIN C [Concomitant]
     Indication: PRODUCT USED FOR UNKNOWN INDICATION
     Dosage: 1.25 MG
     Route: 065
  6. VITAMIN B COMPLEX [Concomitant]
     Indication: PRODUCT USED FOR UNKNOWN INDICATION
     Dosage: 1.25 MG
     Route: 065
  7. CALCIUM 600 AND VITAMIN D [Concomitant]
     Indication: PRODUCT USED FOR UNKNOWN INDICATION
     Dosage: 600 M+D
     Route: 065

REACTIONS (5)
  - Haemorrhage [Recovered/Resolved]
  - Platelet count decreased [Recovered/Resolved]
  - Fall [Recovered/Resolved]
  - Acetabulum fracture [Unknown]
  - Pubis fracture [Unknown]
